FAERS Safety Report 23905810 (Version 2)
Quarter: 2024Q2

REPORT INFORMATION
  Report Type: Spontaneous
  Country: IE (occurrence: IE)
  Receive Date: 20240527
  Receipt Date: 20240628
  Transmission Date: 20240715
  Serious: Yes (Death, Hospitalization, Congenital Anomaly, Other)
  Sender: FDA-Public Use
  Company Number: None

PATIENT
  Sex: Female
  Weight: 1.535 kg

DRUGS (8)
  1. LETROZOLE [Suspect]
     Active Substance: LETROZOLE
     Indication: Therapeutic ovarian suppression
     Dosage: 2.5 MG, Q24H
     Route: 048
     Dates: start: 202103
  2. LETROZOLE [Suspect]
     Active Substance: LETROZOLE
     Indication: Breast cancer
  3. VALSARTAN [Suspect]
     Active Substance: VALSARTAN
     Indication: Hypertension
     Dosage: 80 MG, Q24H
     Route: 065
     Dates: end: 20211117
  4. LABETALOL [Suspect]
     Active Substance: LABETALOL\LABETALOL HYDROCHLORIDE
     Indication: Hypertension
     Dosage: UNK
     Route: 065
     Dates: start: 20211117
  5. GOSERELIN [Suspect]
     Active Substance: GOSERELIN
     Indication: Therapeutic ovarian suppression
     Dosage: UNK
     Route: 067
     Dates: start: 20211022, end: 20211022
  6. GOSERELIN [Suspect]
     Active Substance: GOSERELIN
     Dosage: UNK
     Route: 067
     Dates: start: 20210827, end: 20210827
  7. GOSERELIN [Suspect]
     Active Substance: GOSERELIN
     Dosage: UNK
     Route: 067
     Dates: start: 20210925, end: 20210925
  8. GOSERELIN [Suspect]
     Active Substance: GOSERELIN
     Dosage: UNK
     Route: 067
     Dates: start: 20210730, end: 20210730

REACTIONS (6)
  - Congenital anomaly [Fatal]
  - Oligohydramnios [Fatal]
  - Maternal exposure during pregnancy [Fatal]
  - Maternal drugs affecting foetus [Fatal]
  - Congenital cystic kidney disease [Fatal]
  - Pulmonary hypoplasia [Fatal]

NARRATIVE: CASE EVENT DATE: 20211122
